FAERS Safety Report 6095817-4 (Version None)
Quarter: 2009Q1

REPORT INFORMATION
  Report Type: 
  Country: None (occurrence: None)
  Receive Date: 20090227
  Receipt Date: 20080619
  Transmission Date: 20090719
  Serious: No
  Sender: FDA-Public Use
  Company Number: A0733918A

PATIENT
  Age: 13 Year
  Sex: Female

DRUGS (4)
  1. LAMICTAL [Suspect]
     Dosage: 150MG TWICE PER DAY
     Route: 048
     Dates: start: 20070901
  2. PROZAC [Suspect]
     Indication: OBSESSIVE-COMPULSIVE DISORDER
     Route: 065
  3. CELEXA [Concomitant]
  4. DESMOPRESSIN ACETATE [Concomitant]

REACTIONS (1)
  - HEADACHE [None]
